FAERS Safety Report 9735657 (Version 1)
Quarter: 2013Q4

REPORT INFORMATION
  Report Type: Report from Study
  Country: BR (occurrence: BR)
  Receive Date: 20131206
  Receipt Date: 20131206
  Transmission Date: 20140711
  Serious: Yes (Life-Threatening, Other)
  Sender: FDA-Public Use
  Company Number: PHHY2013BR141450

PATIENT
  Age: 37 Year
  Sex: Male

DRUGS (14)
  1. SANDOSTATIN LAR [Suspect]
     Indication: NEUROENDOCRINE TUMOUR
     Dosage: 30 MG, TWICE A MONTH
     Dates: start: 200903
  2. PANCREATIC ENZYMES [Concomitant]
     Dosage: 15 ENZYMES, DAILY
     Dates: start: 2007
  3. LEVAMLODIPINE [Concomitant]
     Dosage: 5 MG, UNK
     Dates: start: 201303
  4. LANTUS [Concomitant]
     Dosage: UNK UKN, BID
     Dates: start: 2007
  5. CAPTOPRIL [Concomitant]
     Dosage: UNK UKN, TID
     Dates: start: 201303
  6. HYDROCHLOROTHIAZIDE [Concomitant]
     Dosage: 25 MG
     Dates: start: 2013
  7. FLUOXETINE [Concomitant]
     Dosage: UNK UKN, QD
     Dates: start: 2013
  8. RIVOTRIL [Concomitant]
     Dosage: UNK, ONCE AT NIGHT
     Dates: start: 201303
  9. PANTOPRAZOLE [Concomitant]
     Dosage: 40 MG, BID
     Dates: start: 2009
  10. OMEPRAZOLE [Concomitant]
     Dosage: UNK UKN, UNK
     Dates: start: 2004, end: 2009
  11. PURAN T4 [Concomitant]
     Dosage: 125 UG, UNK
     Dates: start: 2009
  12. CALCIUM ^SANDOZ^ [Concomitant]
     Dosage: UNK UKN, UNK
     Dates: start: 201203
  13. CALCIUM [Concomitant]
     Dosage: UNK UKN, BID
     Dates: start: 201203
  14. NOVORAPID [Concomitant]
     Dosage: 6 TIMES DAILY
     Dates: start: 2007

REACTIONS (2)
  - Procedural complication [Recovered/Resolved]
  - Cardiac arrest [Recovered/Resolved]
